FAERS Safety Report 6081083-2 (Version None)
Quarter: 2009Q1

REPORT INFORMATION
  Report Type: 
  Country: None (occurrence: None)
  Receive Date: 20090217
  Receipt Date: 20090206
  Transmission Date: 20090719
  Serious: Yes (Hospitalization)
  Sender: FDA-Public Use
  Company Number: HU-GENENTECH-277260

PATIENT
  Sex: Female

DRUGS (4)
  1. RSHAPO2L-TRAIL [Suspect]
     Indication: NON-SMALL CELL LUNG CANCER
     Dosage: 1200 MG, Q3W
     Route: 042
     Dates: start: 20080616
  2. BEVACIZUMAB [Suspect]
     Indication: NON-SMALL CELL LUNG CANCER
     Dosage: 900 MG, Q3W
     Route: 042
     Dates: start: 20080616
  3. PACLITAXEL [Concomitant]
     Indication: NON-SMALL CELL LUNG CANCER
     Dosage: UNK
     Dates: start: 20080616, end: 20081201
  4. CARBOPLATIN [Concomitant]
     Indication: NON-SMALL CELL LUNG CANCER
     Dosage: UNK
     Dates: start: 20080616, end: 20081201

REACTIONS (1)
  - ANAEMIA [None]
